FAERS Safety Report 7153311-3 (Version None)
Quarter: 2010Q4

REPORT INFORMATION
  Report Type: 
  Country: None (occurrence: None)
  Receive Date: 20101213
  Receipt Date: 20101207
  Transmission Date: 20110411
  Serious: Yes (Life-Threatening, Hospitalization, Other)
  Sender: FDA-Public Use
  Company Number: AU-ASTRAZENECA-2010SE58069

PATIENT
  Age: 438 Month
  Sex: Female

DRUGS (10)
  1. SEROQUEL [Suspect]
     Indication: MENTAL DISORDER
     Dosage: STARTED PRE-PREGNANCY
     Route: 048
  2. ALDOMET [Suspect]
     Indication: HYPERTENSION
     Dosage: STARTED IN FIRST TRIMESTER STOPPED AT DELIVERY
     Route: 048
  3. COVERSYL [Concomitant]
     Indication: HYPERTENSION
     Dosage: STARTED BEFORE PREGNANCY STOPPED EARLY IN FIRST TRIMESTER
     Route: 048
  4. BLACKMORES F+BF FORMULA [Concomitant]
     Indication: VITAMIN SUPPLEMENTATION
     Dosage: STARTED BEGINNING OF PREGNANCY, STOPPED AT DELIVERY
     Route: 048
  5. FERROGRADUMET+C [Concomitant]
     Indication: ANTIEMETIC SUPPORTIVE CARE
     Dosage: STARTED BEGINNING OF PREGNANCY, STOPPED AT DELIVERY
     Route: 048
  6. STEMAZINE [Concomitant]
     Indication: ANTIEMETIC SUPPORTIVE CARE
     Dosage: STARTED BEGINNING OF PREGNANCY, STOPPED AT DELIVERY
     Route: 048
  7. PREDNISOLONE [Concomitant]
     Indication: ANTIINFLAMMATORY THERAPY
     Dosage: 5-40 MG AS REQUIRED
     Route: 048
  8. PREDNISOLONE [Concomitant]
     Indication: ANTIALLERGIC THERAPY
     Dosage: 5-40 MG AS REQUIRED
     Route: 048
  9. NOVORAPID [Concomitant]
     Indication: DIABETES MELLITUS
     Dosage: 12-58 UNITS DAILY, STARTED AT 27/40 WKS OF GESTATION, STOPPED AT DELIVERY
     Route: 058
  10. PROTOPHANE [Concomitant]
     Indication: DIABETES MELLITUS
     Dosage: 4-28 UNITS DAILY, STARTED AT 27/40 WKS OF GESTATION, STOPPED AT DELIVERY
     Route: 058

REACTIONS (7)
  - CAESAREAN SECTION [None]
  - DRUG EXPOSURE DURING PREGNANCY [None]
  - GESTATIONAL DIABETES [None]
  - GESTATIONAL HYPERTENSION [None]
  - HYPEREMESIS GRAVIDARUM [None]
  - PREGNANCY [None]
  - PREMATURE LABOUR [None]
